FAERS Safety Report 17995752 (Version 2)
Quarter: 2020Q4

REPORT INFORMATION
  Report Type: Spontaneous
  Country: US (occurrence: US)
  Receive Date: 20200708
  Receipt Date: 20201218
  Transmission Date: 20210113
  Serious: Yes (Other)
  Sender: FDA-Public Use
  Company Number: US-SA-2020SA174952

PATIENT

DRUGS (8)
  1. LEVOTHYROXINE. [Concomitant]
     Active Substance: LEVOTHYROXINE
     Dosage: UNK
     Dates: start: 20050101
  2. TAXOTERE [Suspect]
     Active Substance: DOCETAXEL
     Dosage: 75 UNK, Q3W
     Route: 065
     Dates: start: 20130711, end: 20130711
  3. TOPIRAMATE. [Concomitant]
     Active Substance: TOPIRAMATE
     Dosage: UNK
     Dates: start: 20050101
  4. TRIAMTERENE HCTZ [Concomitant]
     Active Substance: HYDROCHLOROTHIAZIDE\TRIAMTERENE
     Dosage: UNK
     Dates: start: 20050101
  5. FLUOXETINE [Concomitant]
     Active Substance: FLUOXETINE HYDROCHLORIDE
     Dosage: UNK
     Dates: start: 20050101
  6. SIMVASTATIN. [Concomitant]
     Active Substance: SIMVASTATIN
     Dosage: UNK
     Dates: start: 20050101
  7. TAXOTERE [Suspect]
     Active Substance: DOCETAXEL
     Indication: BREAST CANCER FEMALE
     Dosage: 75 UNK, Q3W
     Route: 065
     Dates: start: 20130307, end: 20130307
  8. PARAPLATIN [Concomitant]
     Active Substance: CARBOPLATIN
     Indication: BREAST CANCER FEMALE

REACTIONS (6)
  - Alopecia [Recovering/Resolving]
  - Psychological trauma [Unknown]
  - Pain [Unknown]
  - Impaired quality of life [Unknown]
  - Anxiety [Unknown]
  - Emotional distress [Unknown]

NARRATIVE: CASE EVENT DATE: 20130501
